FAERS Safety Report 7980160-6 (Version None)
Quarter: 2011Q4

REPORT INFORMATION
  Report Type: 
  Country: None (occurrence: None)
  Receive Date: 20111214
  Receipt Date: 20111201
  Transmission Date: 20120403
  Serious: Yes (Death)
  Sender: FDA-Public Use
  Company Number: JP-ACTELION-A-CH2011-57879

PATIENT
  Age: 19 Year
  Sex: Female
  Weight: 15 kg

DRUGS (15)
  1. ERYTHROMYCIN ETHYLSUCCINATE [Concomitant]
  2. FAMOTIDINE [Concomitant]
  3. FUROSEMIDE [Concomitant]
  4. TRACLEER [Suspect]
     Indication: PULMONARY ARTERIAL HYPERTENSION
     Dosage: 31.25 MG, QD
     Route: 048
     Dates: start: 20090618, end: 20090723
  5. NIFEDIPINE [Concomitant]
  6. SPIRONOLACTONE [Concomitant]
  7. CARBOCISTEINE [Concomitant]
  8. FENTANYL CITRATE [Concomitant]
  9. TOCOPHERYL NICOTINATE [Concomitant]
  10. FERRIC SODIUM CITRATE [Concomitant]
  11. TRACLEER [Suspect]
     Dosage: 62.5 MG, QD
     Route: 048
     Dates: start: 20090724, end: 20091124
  12. TRACLEER [Suspect]
     Dosage: 93.75 MG, QD
     Route: 048
     Dates: start: 20091125, end: 20100729
  13. TRACLEER [Suspect]
     Dosage: 31.25 MG, QD
     Route: 048
     Dates: start: 20100730, end: 20100813
  14. ENALAPRIL MALEATE [Concomitant]
  15. CEFAZOLIN SODIUM [Concomitant]

REACTIONS (5)
  - HEPATIC FUNCTION ABNORMAL [None]
  - ALANINE AMINOTRANSFERASE INCREASED [None]
  - ASPARTATE AMINOTRANSFERASE INCREASED [None]
  - DEATH [None]
  - GAMMA-GLUTAMYLTRANSFERASE INCREASED [None]
